FAERS Safety Report 21524383 (Version 4)
Quarter: 2023Q1

REPORT INFORMATION
  Report Type: Report from Study
  Country: US (occurrence: US)
  Receive Date: 20221029
  Receipt Date: 20230321
  Transmission Date: 20230417
  Serious: No
  Sender: FDA-Public Use
  Company Number: US-NOVARTISTESTPH-NVSC2022US243532

PATIENT
  Sex: Female

DRUGS (1)
  1. ENTRESTO [Suspect]
     Active Substance: SACUBITRIL\VALSARTAN
     Indication: Product used for unknown indication
     Dosage: UNK
     Route: 065
     Dates: start: 202210

REACTIONS (5)
  - Blood pressure increased [Recovering/Resolving]
  - Blood glucose abnormal [Unknown]
  - Headache [Recovering/Resolving]
  - Dyspnoea [Unknown]
  - Sinus tachycardia [Not Recovered/Not Resolved]
